FAERS Safety Report 22632841 (Version 6)
Quarter: 2024Q2

REPORT INFORMATION
  Report Type: Spontaneous
  Country: US (occurrence: US)
  Receive Date: 20230623
  Receipt Date: 20240513
  Transmission Date: 20240716
  Serious: Yes (Hospitalization, Other)
  Sender: FDA-Public Use
  Company Number: US-BRISTOL-MYERS SQUIBB COMPANY-2023-088060

PATIENT
  Age: 77 Year
  Sex: Female

DRUGS (4)
  1. POMALYST [Suspect]
     Active Substance: POMALIDOMIDE
     Indication: Plasma cell myeloma
     Dosage: TAKE 1 WHOLE CAPSULE BY MOUTH WITH GLASS OF WATER ON EMPTY STOMACH EVERY DAY FOR 14 DAYS ON THEN 14
     Route: 048
     Dates: start: 20221216
  2. POMALYST [Suspect]
     Active Substance: POMALIDOMIDE
     Dates: start: 20230616
  3. POMALYST [Suspect]
     Active Substance: POMALIDOMIDE
     Dosage: TAKE 1 CAPSULE WHOLE BY MOUTH
     Route: 048
     Dates: end: 20240104
  4. POMALYST [Suspect]
     Active Substance: POMALIDOMIDE
     Dosage: TAKE 1 CAPSULE WHOLE BY MOUTH WITH WATER, ON AN EMPTY STOMACH, EVERY DAY FOR 14 DAYS ON, THEN 14 DAY
     Route: 048
     Dates: end: 20240104

REACTIONS (9)
  - Fatigue [Not Recovered/Not Resolved]
  - Neuropathy peripheral [Not Recovered/Not Resolved]
  - Pneumonia [Not Recovered/Not Resolved]
  - Off label use [Unknown]
  - COVID-19 [Recovered/Resolved]
  - Decreased appetite [Unknown]
  - Somnolence [Unknown]
  - Blood pressure decreased [Unknown]
  - Respiratory tract infection [Unknown]

NARRATIVE: CASE EVENT DATE: 20230501
